FAERS Safety Report 24823297 (Version 1)
Quarter: 2025Q1

REPORT INFORMATION
  Report Type: Spontaneous
  Country: FR (occurrence: FR)
  Receive Date: 20250109
  Receipt Date: 20250109
  Transmission Date: 20250409
  Serious: Yes (Hospitalization, Other)
  Sender: SANOFI AVENTIS
  Company Number: None

PATIENT
  Age: 68 Year
  Sex: Male
  Weight: 75 kg

DRUGS (2)
  1. LOVENOX [Suspect]
     Active Substance: ENOXAPARIN SODIUM
     Indication: Atrial fibrillation
     Dosage: 8000 IU, Q12H
     Route: 058
     Dates: start: 20241009, end: 20241017
  2. HEPARIN SODIUM [Suspect]
     Active Substance: HEPARIN SODIUM
     Indication: Valvuloplasty cardiac
     Route: 042
     Dates: start: 20241007, end: 20241009

REACTIONS (2)
  - Transient ischaemic attack [Recovered/Resolved]
  - Heparin-induced thrombocytopenia [Recovered/Resolved]

NARRATIVE: CASE EVENT DATE: 20241014
